FAERS Safety Report 13036007 (Version 2)
Quarter: 2017Q1

REPORT INFORMATION
  Report Type: Spontaneous
  Country: JP (occurrence: JP)
  Receive Date: 20161216
  Receipt Date: 20170202
  Transmission Date: 20170428
  Serious: Yes (Hospitalization)
  Sender: FDA-Public Use
  Company Number: JP-MYLANLABS-2016M1055336

PATIENT
  Age: 11 Year
  Sex: Male

DRUGS (1)
  1. CLARITHROMYCIN MYLAN [Suspect]
     Active Substance: CLARITHROMYCIN
     Indication: COUGH
     Route: 048

REACTIONS (1)
  - Interstitial lung disease [Recovering/Resolving]
